FAERS Safety Report 4687409-6 (Version None)
Quarter: 2005Q2

REPORT INFORMATION
  Report Type: 
  Country: None (occurrence: None)
  Receive Date: 20050608
  Receipt Date: 20050608
  Transmission Date: 20051028
  Serious: Yes (Other)
  Sender: FDA-Public Use
  Company Number: None

PATIENT
  Age: 69 Year
  Sex: Male
  Weight: 102.2861 kg

DRUGS (7)
  1. ZETIA [Suspect]
     Indication: HYPERLIPIDAEMIA
     Dosage: 10MG  Q DAY ORAL
     Route: 048
  2. AMIODARONE [Concomitant]
  3. WARFARIN SODIUM [Concomitant]
  4. FELODIPINE [Concomitant]
  5. TERAZOSIN [Concomitant]
  6. DIGOXIN [Concomitant]
  7. LISINOPRIL [Concomitant]

REACTIONS (1)
  - MYALGIA [None]
